FAERS Safety Report 8588428-X (Version None)
Quarter: 2012Q3

REPORT INFORMATION
  Report Type: 
  Country: None (occurrence: None)
  Receive Date: 20120813
  Receipt Date: 20120810
  Transmission Date: 20120928
  Serious: No
  Sender: FDA-Public Use
  Company Number: US-PFIZER INC-2012195953

PATIENT
  Age: 35 Year
  Sex: Female
  Weight: 81.633 kg

DRUGS (2)
  1. CHANTIX [Suspect]
     Indication: SMOKING CESSATION THERAPY
     Dosage: 0.5 MG, 1X/DAY
     Route: 048
     Dates: start: 20120806, end: 20120801
  2. CHANTIX [Suspect]
     Dosage: 0.5 MG, 2X/DAY
     Route: 048
     Dates: start: 20120801

REACTIONS (4)
  - VOMITING [None]
  - ANOSMIA [None]
  - NAUSEA [None]
  - DYSPHAGIA [None]
